FAERS Safety Report 7400623-1 (Version None)
Quarter: 2011Q2

REPORT INFORMATION
  Report Type: 
  Country: None (occurrence: None)
  Receive Date: 20110407
  Receipt Date: 20110404
  Transmission Date: 20111010
  Serious: Yes (Other)
  Sender: FDA-Public Use
  Company Number: US-PFIZER INC-2011073941

PATIENT
  Sex: Female
  Weight: 42.177 kg

DRUGS (4)
  1. ADVIL LIQUI-GELS [Suspect]
     Indication: ARTHRITIS
     Dosage: 200 MG, AS NEEDED
  2. TRAMADOL HCL [Suspect]
     Indication: ARTHRITIS
     Dosage: UNK
  3. MULTIVITAMIN [Concomitant]
     Dosage: UNK
  4. AMBIEN CR [Concomitant]
     Indication: SLEEP DISORDER
     Dosage: UNK

REACTIONS (2)
  - URTICARIA [None]
  - RASH [None]
